FAERS Safety Report 19476762 (Version 4)
Quarter: 2022Q1

REPORT INFORMATION
  Report Type: Report from Study
  Country: FR (occurrence: None)
  Receive Date: 20210630
  Receipt Date: 20220315
  Transmission Date: 20220423
  Serious: Yes (Hospitalization)
  Sender: FDA-Public Use
  Company Number: FR-ROCHE-2857749

PATIENT
  Age: 74 Year
  Sex: Female

DRUGS (5)
  1. TOCILIZUMAB [Suspect]
     Active Substance: TOCILIZUMAB
     Indication: COVID-19
     Dosage: 20 MG/ML CONCENTRATE
     Route: 042
     Dates: start: 20201230, end: 20201230
  2. TOCILIZUMAB [Suspect]
     Active Substance: TOCILIZUMAB
     Dosage: 20 MG/ML CONCENTRATE
     Route: 042
     Dates: start: 20210101, end: 20210101
  3. DEXAMETHASONE [Suspect]
     Active Substance: DEXAMETHASONE
     Indication: COVID-19
     Dosage: 4 MG/ML CONCENTRATION
     Route: 042
     Dates: start: 20201230, end: 20210102
  4. DEXAMETHASONE [Suspect]
     Active Substance: DEXAMETHASONE
     Dosage: 4 MG/ML CONCENTRATION
     Route: 042
     Dates: start: 20210103, end: 20210104
  5. DEXAMETHASONE [Suspect]
     Active Substance: DEXAMETHASONE
     Dosage: 4 MG/ML CONCENTRATION
     Route: 042
     Dates: start: 20210105, end: 20210105

REACTIONS (3)
  - Ischaemic stroke [Recovered/Resolved]
  - Febrile neutropenia [Recovered/Resolved]
  - Cognitive disorder [Not Recovered/Not Resolved]

NARRATIVE: CASE EVENT DATE: 20210108
